FAERS Safety Report 9305279 (Version 2)
Quarter: 2013Q2

REPORT INFORMATION
  Report Type: Spontaneous
  Country: US (occurrence: US)
  Receive Date: 20130523
  Receipt Date: 20130629
  Transmission Date: 20140414
  Serious: No
  Sender: FDA-Public Use
  Company Number: US-009507513-1305USA011654

PATIENT
  Age: 26 Year
  Sex: Female
  Weight: 158.73 kg

DRUGS (1)
  1. IMPLANON [Suspect]
     Dosage: 1 DF, UNK
     Route: 059
     Dates: start: 20100202

REACTIONS (3)
  - Device deployment issue [Unknown]
  - Device dislocation [Unknown]
  - Medical device complication [Not Recovered/Not Resolved]
